FAERS Safety Report 8909292 (Version 1)
Quarter: 2012Q4

REPORT INFORMATION
  Report Type: Spontaneous
  Country: ES (occurrence: None)
  Receive Date: 20121107
  Receipt Date: 20121107
  Transmission Date: 20130627
  Serious: Yes (Death)
  Sender: FDA-Public Use
  Company Number: DSA_60464_2012

PATIENT

DRUGS (5)
  1. FLUOROURACIL  (FLUOROURACIL) [Suspect]
     Indication: COLORECTAL CANCER
     Route: 040
  2. FLUOROURACIL  (FLUOROURACIL) [Suspect]
     Indication: COLORECTAL CANCER
     Route: 040
  3. OXALIPLATIN (OXALIPLATIN) [Suspect]
  4. LEUCOVORIN [Suspect]
     Indication: COLORECTAL CANCER
  5. ANTIEMETICS AND ANTINAUSEANTS [Concomitant]

REACTIONS (2)
  - Pancytopenia [None]
  - Septic shock [None]
